FAERS Safety Report 16688768 (Version 2)
Quarter: 2022Q1

REPORT INFORMATION
  Report Type: Spontaneous
  Country: NL (occurrence: NL)
  Receive Date: 20190809
  Receipt Date: 20220107
  Transmission Date: 20220423
  Serious: Yes (Hospitalization)
  Sender: FDA-Public Use
  Company Number: NL-TEVA-2019-NL-1083955

PATIENT
  Age: 73 Year
  Sex: Male

DRUGS (4)
  1. FENTANYL [Interacting]
     Active Substance: FENTANYL
     Indication: Cancer pain
     Route: 065
  2. FENTANYL [Interacting]
     Active Substance: FENTANYL
     Dosage: FORMULATION:PLASTERS
     Route: 065
  3. FENTANYL [Interacting]
     Active Substance: FENTANYL
     Dosage: FORMULATION:PLASTERS; 37.5 MCG/HOUR
     Route: 065
  4. ENZALUTAMIDE [Interacting]
     Active Substance: ENZALUTAMIDE
     Indication: Prostate cancer metastatic
     Route: 065

REACTIONS (2)
  - Drug interaction [Unknown]
  - Drug level decreased [Unknown]
